FAERS Safety Report 25118860 (Version 1)
Quarter: 2025Q1

REPORT INFORMATION
  Report Type: Report from Study
  Country: IT (occurrence: IT)
  Receive Date: 20250325
  Receipt Date: 20250325
  Transmission Date: 20250408
  Serious: Yes (Hospitalization)
  Sender: ABBVIE
  Company Number: IT-ABBVIE-6186389

PATIENT
  Age: 60 Year
  Sex: Male

DRUGS (1)
  1. UPADACITINIB [Suspect]
     Active Substance: UPADACITINIB
     Indication: VEXAS syndrome
     Route: 048

REACTIONS (2)
  - Pancytopenia [Unknown]
  - Rheumatic disorder [Unknown]
